FAERS Safety Report 8791920 (Version 1)
Quarter: 2012Q4

REPORT INFORMATION
  Report Type: 
  Country: FR (occurrence: FR)
  Receive Date: 20120918
  Receipt Date: 20120918
  Transmission Date: 20130627
  Serious: Yes (Hospitalization, Other)
  Sender: FDA-Public Use
  Company Number: FR-PFIZER INC-2012228079

PATIENT
  Age: 87 Year
  Sex: Female

DRUGS (6)
  1. CORDARONE [Suspect]
     Indication: ATRIAL FIBRILLATION
     Dosage: 1 dosage form; (200mg) Daily
     Route: 048
  2. PRADAXA [Interacting]
     Indication: ATRIAL FIBRILLATION
     Dosage: 110 mg twice daily
     Route: 048
  3. ALTEIS [Concomitant]
     Dosage: Unk
  4. TAHOR [Concomitant]
     Dosage: Unk
  5. HYPERIUM [Concomitant]
     Dosage: Unk
  6. FORTICREME [Concomitant]
     Dosage: UNK

REACTIONS (5)
  - Drug interaction [Recovered/Resolved]
  - Rectal haemorrhage [Recovered/Resolved]
  - Prothrombin time ratio decreased [Unknown]
  - Haemoglobin decreased [Unknown]
  - Renal failure [Unknown]
